FAERS Safety Report 8536785 (Version 2)
Quarter: 2013Q1

REPORT INFORMATION
  Report Type: Spontaneous
  Country: US (occurrence: US)
  Receive Date: 20120430
  Receipt Date: 20130104
  Transmission Date: 20140127
  Serious: Yes (Hospitalization)
  Sender: FDA-Public Use
  Company Number: US-BAYER-2012-041581

PATIENT
  Age: 23 Year
  Sex: Female
  Weight: 71.2 kg

DRUGS (8)
  1. YASMIN [Suspect]
     Indication: CONTRACEPTION
     Dosage: UNK
     Dates: start: 200501, end: 2009
  2. YASMIN [Suspect]
     Indication: PREMENSTRUAL SYNDROME
  3. OCELLA [Suspect]
     Indication: CONTRACEPTION
     Dosage: UNK
     Dates: start: 200501, end: 2009
  4. OCELLA [Suspect]
     Indication: PREMENSTRUAL SYNDROME
  5. AMFETAMINE [Concomitant]
     Indication: ANXIETY
     Dosage: 10 MG, UNK
     Dates: start: 200607, end: 2008
  6. CIPROFLOXACIN [Concomitant]
     Dosage: 500 MG, UNK
  7. HYDROCODONE W/APAP [Concomitant]
     Dosage: 5-500MG
  8. TRAMADOL/APAP [Concomitant]
     Dosage: 37.5/325MG

REACTIONS (6)
  - Gallbladder disorder [None]
  - Cholecystitis chronic [None]
  - Injury [None]
  - Pain [None]
  - General physical health deterioration [None]
  - Emotional distress [None]
